FAERS Safety Report 6895486-7 (Version None)
Quarter: 2010Q3

REPORT INFORMATION
  Report Type: 
  Country: None (occurrence: None)
  Receive Date: 20100802
  Receipt Date: 20100723
  Transmission Date: 20110219
  Serious: Yes (Death, Hospitalization, Other)
  Sender: FDA-Public Use
  Company Number: PHHY2010US47597

PATIENT
  Sex: Female

DRUGS (7)
  1. EXJADE [Suspect]
     Indication: SICKLE CELL ANAEMIA
     Dosage: 1500 MG, QD
     Route: 048
     Dates: end: 20100712
  2. EXJADE [Suspect]
     Indication: IRON OVERLOAD
  3. FOLIC ACID [Concomitant]
     Indication: SICKLE CELL ANAEMIA
     Dosage: 1 UNK, QD
     Route: 048
  4. ALBUTEROL SULATE [Concomitant]
     Indication: ASTHMA
     Dosage: PRN PUFFS
     Route: 048
  5. LORTAB [Concomitant]
     Indication: PAIN
     Dosage: UNK
     Dates: start: 20010101, end: 20100712
  6. HYDREA [Concomitant]
     Indication: SICKLE CELL ANAEMIA
     Dosage: 1500 MG PER DAY
     Route: 048
     Dates: start: 20000101
  7. I.V. SOLUTION ADDITIVES [Concomitant]

REACTIONS (31)
  - AGITATION [None]
  - ANAEMIA [None]
  - APNOEA [None]
  - AREFLEXIA [None]
  - BACK PAIN [None]
  - BLOOD GLUCOSE INCREASED [None]
  - BRAIN OEDEMA [None]
  - BREATH SOUNDS ABSENT [None]
  - CARDIOVERSION [None]
  - CEREBRAL DISORDER [None]
  - CORNEAL REFLEX DECREASED [None]
  - HAEMATOCRIT DECREASED [None]
  - HAEMOGLOBIN DECREASED [None]
  - HEART SOUNDS ABNORMAL [None]
  - HYPOTENSION [None]
  - HYPOXIC-ISCHAEMIC ENCEPHALOPATHY [None]
  - METABOLIC ACIDOSIS [None]
  - OXYGEN CONSUMPTION INCREASED [None]
  - PAIN [None]
  - PAIN IN EXTREMITY [None]
  - PLATELET COUNT INCREASED [None]
  - PULSE ABSENT [None]
  - PUPIL FIXED [None]
  - PYREXIA [None]
  - RENAL FAILURE [None]
  - RESPIRATORY ACIDOSIS [None]
  - RESUSCITATION [None]
  - SICKLE CELL ANAEMIA WITH CRISIS [None]
  - UNRESPONSIVE TO STIMULI [None]
  - VENTRICULAR FIBRILLATION [None]
  - WHITE BLOOD CELL COUNT INCREASED [None]
